FAERS Safety Report 23854905 (Version 2)
Quarter: 2024Q3

REPORT INFORMATION
  Report Type: Spontaneous
  Country: US (occurrence: US)
  Receive Date: 20240514
  Receipt Date: 20240812
  Transmission Date: 20241016
  Serious: Yes (Other)
  Sender: ANI
  Company Number: US-ANIPHARMA-2024-US-024409

PATIENT
  Age: 54 Year
  Sex: Female
  Weight: 154.22 kg

DRUGS (32)
  1. CORTICOTROPIN [Suspect]
     Active Substance: CORTICOTROPIN
     Indication: Multiple sclerosis
     Dosage: 80 UNITS SUBCUTANEOUSLY DAILY FOR 21 DAYS
     Route: 058
     Dates: start: 20240325
  2. MUPIROCIN POWDER [Concomitant]
  3. JARDIANCE [Concomitant]
     Active Substance: EMPAGLIFLOZIN
  4. OMEPRAZOLE [Concomitant]
     Active Substance: OMEPRAZOLE
  5. BUMETANIDE [Concomitant]
     Active Substance: BUMETANIDE
  6. LEVOTHYROXINE SODIUM [Concomitant]
     Active Substance: LEVOTHYROXINE SODIUM
  7. ROPINIROLE ER 24 HR [Concomitant]
  8. GABAPENTIN [Concomitant]
     Active Substance: GABAPENTIN
  9. FLUOXETINE DR [Concomitant]
  10. BACLOFEN [Concomitant]
     Active Substance: BACLOFEN
  11. NURTTEC ODT RAPDIS [Concomitant]
  12. EPINEPHRINE AUTO INJCT [Concomitant]
  13. ALBUTEROL\IPRATROPIUM [Concomitant]
     Active Substance: ALBUTEROL\IPRATROPIUM
  14. ELIQUIS [Concomitant]
     Active Substance: APIXABAN
  15. OLANZAPINE [Concomitant]
     Active Substance: OLANZAPINE
  16. MELOXICAM [Concomitant]
     Active Substance: MELOXICAM
  17. VITAMIN D2 [Concomitant]
     Active Substance: ERGOCALCIFEROL
  18. SPIRONOLACTONE [Concomitant]
     Active Substance: SPIRONOLACTONE
  19. BENADRYL [Concomitant]
     Active Substance: DIPHENHYDRAMINE HYDROCHLORIDE
  20. CLARITIN [Concomitant]
     Active Substance: LORATADINE
  21. GAS-X [Concomitant]
     Active Substance: DIMETHICONE
  22. TYLENOL [Concomitant]
     Active Substance: ACETAMINOPHEN
  23. MAVENCLAD [Concomitant]
     Active Substance: CLADRIBINE
  24. PEPTO-BISMOL [Concomitant]
     Active Substance: BISMUTH SUBSALICYLATE
  25. PROMETHAZINE [Concomitant]
     Active Substance: PROMETHAZINE HYDROCHLORIDE
  26. RIZATRIPTAN [Concomitant]
     Active Substance: RIZATRIPTAN
  27. BENZONATATE [Concomitant]
     Active Substance: BENZONATATE
  28. CYANOCOBALAMIN SPRAY [Concomitant]
  29. METOLAZONE [Concomitant]
     Active Substance: METOLAZONE
  30. TIZANIDINE HYDROCHLORIDE [Concomitant]
     Active Substance: TIZANIDINE HYDROCHLORIDE
  31. QULIPTA [Concomitant]
     Active Substance: ATOGEPANT
  32. COLLAGENASE SANTYL [Concomitant]
     Active Substance: COLLAGENASE CLOSTRIDIUM HISTOLYTICUM

REACTIONS (6)
  - Multiple sclerosis relapse [Unknown]
  - Withdrawal syndrome [Unknown]
  - Contraindicated product administered [Not Recovered/Not Resolved]
  - Migraine [Unknown]
  - Nausea [Unknown]
  - Product dose omission issue [Unknown]

NARRATIVE: CASE EVENT DATE: 20240419
